FAERS Safety Report 19790828 (Version 1)
Quarter: 2021Q3

REPORT INFORMATION
  Report Type: Spontaneous
  Country: FR (occurrence: FR)
  Receive Date: 20210906
  Receipt Date: 20210906
  Transmission Date: 20211014
  Serious: Yes (Other)
  Sender: FDA-Public Use
  Company Number: FR-AUROBINDO-AUR-APL-2021-037395

PATIENT
  Age: 80 Year
  Sex: Female

DRUGS (12)
  1. NICARDIPINE [Suspect]
     Active Substance: NICARDIPINE
     Indication: RAYNAUD^S PHENOMENON
     Dosage: 20 MILLIGRAM, TWO TIMES A DAY
     Route: 065
     Dates: start: 2019
  2. MONOPROST [Suspect]
     Active Substance: LATANOPROST
     Indication: GLAUCOMA
     Dosage: 2 GTT DROPS (1 DROP IN THE EVENING IN BOTH EYES)
     Route: 065
  3. NUTROF TOTAL (DIETARY SUPPLEMENT\MINERALS\VITAMINS) [Suspect]
     Active Substance: DIETARY SUPPLEMENT\MINERALS\VITAMINS
     Dosage: UNK
     Route: 065
     Dates: start: 20210611, end: 20210620
  4. AMLOR [Suspect]
     Active Substance: AMLODIPINE BESYLATE
     Indication: RAYNAUD^S PHENOMENON
     Dosage: 5 MILLIGRAM, ONCE A DAY
     Route: 065
     Dates: start: 2018
  5. PRESERVISION 3 [Suspect]
     Active Substance: MINERALS\OMEGA-3 FATTY ACIDS\VITAMINS
     Indication: EYE DISORDER
     Dosage: UNK, ONCE A DAY
     Route: 048
     Dates: start: 20210620, end: 20210624
  6. LEVOTHYROX [Concomitant]
     Active Substance: LEVOTHYROXINE
     Indication: THYROID DISORDER
     Dosage: 25 MICROGRAM, ONCE A DAY (1 TABLET DAILY)
     Route: 065
     Dates: start: 20190525
  7. LEVOFREE [Suspect]
     Active Substance: LEVOCABASTINE HYDROCHLORIDE
     Indication: CONJUNCTIVITIS ALLERGIC
     Dosage: 2 GTT DROPS, TWO TIMES A DAY (1 DROP IN THE MORNING AND EVENING IN BOTH EYES, FOR ABOUT 5 YEARS)
     Route: 047
     Dates: start: 20150516
  8. NUTROF TOTAL (DIETARY SUPPLEMENT\MINERALS\VITAMINS) [Suspect]
     Active Substance: DIETARY SUPPLEMENT\MINERALS\VITAMINS
     Indication: PRODUCT USED FOR UNKNOWN INDICATION
     Dosage: UNK
     Route: 065
     Dates: start: 20210714, end: 2021
  9. NUTROF TOTAL (DIETARY SUPPLEMENT\MINERALS\VITAMINS) [Suspect]
     Active Substance: DIETARY SUPPLEMENT\MINERALS\VITAMINS
     Dosage: UNK
     Route: 065
     Dates: start: 202106, end: 202107
  10. REFRESH [Concomitant]
     Active Substance: UNSPECIFIED INGREDIENT
     Indication: DRY EYE
     Dosage: 2 GTT DROPS, 8 A DAY
     Route: 065
  11. DULCILARMES [Concomitant]
     Indication: DRY EYE
     Dosage: 2 GTT DROPS, THREE TIMES A DAY
     Route: 065
  12. LEVOTHYROX [Concomitant]
     Active Substance: LEVOTHYROXINE
     Dosage: 25 MICROGRAM, ONCE A DAY (1.5 TABLET DAILY)
     Route: 065
     Dates: start: 20201014

REACTIONS (12)
  - Vertigo [Not Recovered/Not Resolved]
  - Sjogren^s syndrome [Unknown]
  - Glossitis [Unknown]
  - Headache [Not Recovered/Not Resolved]
  - Tongue ulceration [Recovered/Resolved]
  - Facial discomfort [Unknown]
  - Dyspepsia [Not Recovered/Not Resolved]
  - Vision blurred [Not Recovered/Not Resolved]
  - Condition aggravated [Unknown]
  - Herpes virus infection [Recovered/Resolved]
  - Blood pressure decreased [Not Recovered/Not Resolved]
  - Raynaud^s phenomenon [Unknown]

NARRATIVE: CASE EVENT DATE: 2016
